FAERS Safety Report 7275894-5 (Version None)
Quarter: 2011Q1

REPORT INFORMATION
  Report Type: 
  Country: None (occurrence: None)
  Receive Date: 20110204
  Receipt Date: 20110128
  Transmission Date: 20110831
  Serious: Yes (Death, Hospitalization)
  Sender: FDA-Public Use
  Company Number: A0788872A

PATIENT
  Age: 59 Year
  Sex: Female
  Weight: 75 kg

DRUGS (5)
  1. GLARGINE [Concomitant]
     Dates: start: 20031213, end: 20060331
  2. TOPROL-XL [Concomitant]
     Dates: start: 20040901, end: 20080801
  3. GLUCOPHAGE [Concomitant]
     Dates: start: 20000211, end: 20030701
  4. LIPITOR [Concomitant]
     Dates: start: 20000201, end: 20080801
  5. AVANDIA [Suspect]
     Dosage: 8MG PER DAY
     Route: 048
     Dates: start: 19991213, end: 20060905

REACTIONS (2)
  - MYOCARDIAL INFARCTION [None]
  - SEPTIC SHOCK [None]
